FAERS Safety Report 12281139 (Version 1)
Quarter: 2016Q2

REPORT INFORMATION
  Report Type: Spontaneous
  Country: US (occurrence: US)
  Receive Date: 20160419
  Receipt Date: 20160419
  Transmission Date: 20160815
  Serious: No
  Sender: FDA-Public Use
  Company Number: US-PFIZER INC-2016169841

PATIENT
  Age: 85 Year
  Sex: Male

DRUGS (1)
  1. CALAN SR [Suspect]
     Active Substance: VERAPAMIL HYDROCHLORIDE
     Dosage: 120 MG, DAILY (TAKING A HALF-TABLET OF CALAN SR 240 MG)

REACTIONS (2)
  - Pallor [Unknown]
  - Dizziness [Unknown]
